FAERS Safety Report 9853540 (Version 1)
Quarter: 2014Q1

REPORT INFORMATION
  Report Type: Spontaneous
  Country: FR (occurrence: FR)
  Receive Date: 20140129
  Receipt Date: 20140129
  Transmission Date: 20141002
  Serious: Yes (Hospitalization)
  Sender: FDA-Public Use
  Company Number: FR-PFIZER INC-2014025385

PATIENT
  Age: 45 Year
  Sex: Female

DRUGS (16)
  1. SPIRONOLACTONE [Suspect]
     Dosage: 50 MG, 1X/DAY
     Route: 048
     Dates: end: 20130615
  2. FUROSEMIDE BIOGARAN [Interacting]
     Dosage: 40 MG, 1X/DAY
     Route: 048
     Dates: end: 20130615
  3. OLANZAPINE [Interacting]
     Dosage: 10 MG, 1X/DAY
     Route: 048
  4. PANTOPRAZOLE BIOGARAN [Interacting]
     Dosage: 20 MG, DAILY
     Route: 048
     Dates: end: 201209
  5. PANTOPRAZOLE BIOGARAN [Interacting]
     Dosage: 40 MG, DAILY
     Route: 048
     Dates: start: 201209, end: 20130615
  6. VENLAFAXINE [Interacting]
     Dosage: 37.5 MG, 1X/DAY
     Route: 048
     Dates: end: 20130615
  7. LEVEMIR FLEXPEN [Concomitant]
     Dosage: TWICE DAILY ACCORDING TO BLOOD GLUCOSE LEVEL
     Route: 058
  8. DIAMICRON [Concomitant]
     Dosage: 60 MG, 2X/DAY
     Dates: end: 20130617
  9. LYSANXIA [Concomitant]
     Dosage: 10 MG, AS NEEDED
     Dates: end: 20130615
  10. AOTAL [Concomitant]
     Dosage: 666 MG, 3X/DAY
     Dates: end: 20130615
  11. ALLOPURINOL BIOGARAN [Concomitant]
     Dosage: 200 MG, 1X/DAY
     Dates: end: 20130615
  12. METFORMINE BIOGARAN [Concomitant]
     Dosage: 1 G, 2X/DAY
     Dates: end: 20130617
  13. TAHOR [Concomitant]
     Dosage: 20 MG, 1X/DAY
     Dates: end: 20130615
  14. ZOLPIDEM BIOGARAN [Concomitant]
     Dosage: 10 MG, 1X/DAY
     Dates: end: 20130615
  15. LAMALINE (FRANCE) [Concomitant]
     Indication: BACK PAIN
     Dosage: AS NEEDED
     Route: 054
     Dates: start: 20130527, end: 20130622
  16. PROFENID [Concomitant]
     Indication: BACK PAIN
     Dosage: 100 MG, 4 INJECTIONS IN TOTAL
     Route: 030
     Dates: start: 20130606, end: 20130609

REACTIONS (3)
  - Renal failure acute [Recovered/Resolved]
  - Hypothyroidism [Recovered/Resolved]
  - Drug interaction [Recovered/Resolved]
